FAERS Safety Report 9791513 (Version 1)
Quarter: 2014Q1

REPORT INFORMATION
  Report Type: Report from Study
  Country: JP (occurrence: JP)
  Receive Date: 20140101
  Receipt Date: 20140101
  Transmission Date: 20141002
  Serious: Yes (Hospitalization)
  Sender: FDA-Public Use
  Company Number: PHHY2013JP152714

PATIENT
  Age: 1 Year
  Sex: Female
  Weight: 7.9 kg

DRUGS (8)
  1. SOMATROPIN [Suspect]
     Indication: RENAL FAILURE CHRONIC
     Dosage: 1.4 MG, QW (7 TIMES/WEEK)
     Route: 058
     Dates: start: 20110318
  2. SOMATROPIN [Suspect]
     Indication: DWARFISM
     Dosage: 1.75 MG, QW (7 TIMES/WEEK)
     Route: 058
     Dates: start: 20121206
  3. SOMATROPIN [Suspect]
     Dosage: 3.5 MG, QW (7 TIMES/WEEK)
     Route: 058
     Dates: start: 20130517
  4. SODIUM CHLORIDE [Concomitant]
     Indication: BLOOD SODIUM DECREASED
     Dosage: 1 G PER DAY
     Route: 048
     Dates: start: 20101111, end: 20110420
  5. SODIUM CHLORIDE [Concomitant]
     Dosage: 0.5 G PER DAY
     Route: 048
     Dates: start: 20110421, end: 20110623
  6. ALFAROL [Concomitant]
     Indication: HYPERPARATHYROIDISM
     Dosage: 0.3 UG PER DAY
     Route: 048
     Dates: start: 20110318
  7. INCREMIN                           /02320101/ [Concomitant]
     Indication: IRON DEFICIENCY ANAEMIA
     Dosage: 48 MG PER DAY
     Route: 048
     Dates: start: 20111208
  8. MEVALOTIN [Concomitant]
     Indication: HYPERCHOLESTEROLAEMIA
     Dosage: 5 MG PER DAY
     Route: 048
     Dates: start: 20120113

REACTIONS (2)
  - Anaemia [Recovered/Resolved]
  - Hyperphosphatasaemia [Recovering/Resolving]
